FAERS Safety Report 11764163 (Version 1)
Quarter: 2015Q4

REPORT INFORMATION
  Report Type: Spontaneous
  Country: US (occurrence: US)
  Receive Date: 20151120
  Receipt Date: 20151120
  Transmission Date: 20160304
  Serious: No
  Sender: FDA-Public Use
  Company Number: US-ELI_LILLY_AND_COMPANY-US201305002931

PATIENT
  Age: 65 Year
  Sex: Female

DRUGS (7)
  1. TYLENOL [Concomitant]
     Active Substance: ACETAMINOPHEN
  2. WARFARIN [Concomitant]
     Active Substance: WARFARIN
  3. SINGULAIR [Concomitant]
     Active Substance: MONTELUKAST SODIUM
  4. FORTEO [Suspect]
     Active Substance: TERIPARATIDE
     Indication: OSTEOPOROSIS
     Dosage: UNK, QD
     Dates: start: 201304
  5. MUCINEX [Concomitant]
     Active Substance: GUAIFENESIN
  6. NEXIUM [Concomitant]
     Active Substance: ESOMEPRAZOLE MAGNESIUM
  7. WELLBUTRIN [Concomitant]
     Active Substance: BUPROPION HYDROCHLORIDE

REACTIONS (6)
  - Tendon pain [Unknown]
  - Pain in extremity [Unknown]
  - Pain [Not Recovered/Not Resolved]
  - Arthralgia [Unknown]
  - Pain [Unknown]
  - Nausea [Unknown]

NARRATIVE: CASE EVENT DATE: 201304
